FAERS Safety Report 7289283-0 (Version None)
Quarter: 2011Q1

REPORT INFORMATION
  Report Type: 
  Country: None (occurrence: None)
  Receive Date: 20110211
  Receipt Date: 20110209
  Transmission Date: 20110831
  Serious: Yes (Death, Hospitalization)
  Sender: FDA-Public Use
  Company Number: JP-PFIZER INC-2011029385

PATIENT
  Age: 61 Year
  Sex: Male
  Weight: 66 kg

DRUGS (3)
  1. POLARAMINE [Concomitant]
     Indication: PROPHYLAXIS
     Dosage: 5 MG, 1X/DAY
     Route: 042
  2. TEMSIROLIMUS [Suspect]
     Dosage: UNK
  3. TEMSIROLIMUS [Suspect]
     Indication: RENAL CELL CARCINOMA
     Dosage: 25 MG, WEEKLY
     Dates: start: 20101008, end: 20101210

REACTIONS (4)
  - DYSPNOEA [None]
  - RENAL CELL CARCINOMA [None]
  - LYMPHANGIOSIS CARCINOMATOSA [None]
  - DISEASE PROGRESSION [None]
